FAERS Safety Report 4784404-3 (Version None)
Quarter: 2005Q3

REPORT INFORMATION
  Report Type: 
  Country: None (occurrence: None)
  Receive Date: 20050928
  Receipt Date: 20050907
  Transmission Date: 20060218
  Serious: Yes (Hospitalization)
  Sender: FDA-Public Use
  Company Number: 2005121728

PATIENT
  Sex: Female
  Weight: 84.369 kg

DRUGS (4)
  1. BEXTRA [Suspect]
     Indication: ARTHRALGIA
     Dates: start: 20040101, end: 20050201
  2. ALL OTHER THERAPEUTIC PRODUCTS (ALL OTHER THERAPEUTIC PRODUCTS) [Concomitant]
  3. ZIAC [Concomitant]
  4. GLUCOTROL [Concomitant]

REACTIONS (6)
  - ABDOMINAL PAIN UPPER [None]
  - CEREBROVASCULAR ACCIDENT [None]
  - DYSPEPSIA [None]
  - FEELING ABNORMAL [None]
  - HEMIPLEGIA [None]
  - TRANSIENT ISCHAEMIC ATTACK [None]
